FAERS Safety Report 25863207 (Version 1)
Quarter: 2025Q3

REPORT INFORMATION
  Report Type: Spontaneous
  Country: CA (occurrence: CA)
  Receive Date: 20250930
  Receipt Date: 20250930
  Transmission Date: 20251020
  Serious: Yes (Death, Other)
  Sender: SANOFI AVENTIS
  Company Number: CA-SA-2025SA288950

PATIENT
  Age: 77 Year
  Sex: Male

DRUGS (7)
  1. PREDNISONE [Suspect]
     Active Substance: PREDNISONE
     Indication: Myelodysplastic syndrome
     Route: 065
  2. KEVZARA [Suspect]
     Active Substance: SARILUMAB
     Indication: Myelodysplastic syndrome
     Dosage: 200 MG, QOW
     Route: 058
  3. AZATHIOPRINE [Suspect]
     Active Substance: AZATHIOPRINE
     Indication: Myelodysplastic syndrome
     Dosage: 150 MG, QD
     Route: 065
  4. CYCLOSPORINE [Suspect]
     Active Substance: CYCLOSPORINE
     Indication: Myelodysplastic syndrome
     Dosage: 2.5 MG/KG, QD
  5. METHOTREXATE [Suspect]
     Active Substance: METHOTREXATE
     Indication: Myelodysplastic syndrome
     Route: 058
  6. MYCOPHENOLATE MOFETIL [Suspect]
     Active Substance: MYCOPHENOLATE MOFETIL
     Indication: Myelodysplastic syndrome
     Dosage: 1.5 G, BID
  7. TOFACITINIB [Suspect]
     Active Substance: TOFACITINIB
     Indication: Myelodysplastic syndrome
     Dosage: 5 MG, BID

REACTIONS (5)
  - Mycobacterium chelonae infection [Fatal]
  - COVID-19 pneumonia [Fatal]
  - Pneumonia [Fatal]
  - Drug ineffective for unapproved indication [Fatal]
  - Off label use [Fatal]
